FAERS Safety Report 9870636 (Version 1)
Quarter: 2014Q1

REPORT INFORMATION
  Report Type: Spontaneous
  Country: US (occurrence: None)
  Receive Date: 20140204
  Receipt Date: 20140204
  Transmission Date: 20141002
  Serious: Yes (Other)
  Sender: FDA-Public Use
  Company Number: None

PATIENT
  Age: 23 Year
  Sex: Male
  Weight: 82.1 kg

DRUGS (1)
  1. LAMICTAL [Suspect]
     Indication: SCHIZOAFFECTIVE DISORDER
     Dosage: 150 MG  1 PO HS?THERAPY DATES (DURATION): LIFETIME
     Route: 048

REACTIONS (3)
  - Tremor [None]
  - Feeling abnormal [None]
  - Product substitution issue [None]
